FAERS Safety Report 19382547 (Version 1)
Quarter: 2021Q2

REPORT INFORMATION
  Report Type: Spontaneous
  Country: FR (occurrence: FR)
  Receive Date: 20210607
  Receipt Date: 20210607
  Transmission Date: 20210717
  Serious: Yes (Death)
  Sender: FDA-Public Use
  Company Number: NVSC2021FR128218

PATIENT
  Age: 56 Year
  Sex: Female

DRUGS (15)
  1. CYCLOPHOSPHAMIDE. [Suspect]
     Active Substance: CYCLOPHOSPHAMIDE
     Dosage: 1000 MG/M2, QD (FROM DAY 2 TO DAY 4, CONSECUTIVE COURSE, COPADM 2)
     Route: 065
  2. VINCRISTINE SULFATE. [Suspect]
     Active Substance: VINCRISTINE SULFATE
     Dosage: 2 MG, QD (ON DAY 1 AND DAY 6, CONSECUTIVE COURSE, COPADM 2)
     Route: 065
  3. METHOTREXATE SODIUM. [Suspect]
     Active Substance: METHOTREXATE SODIUM
     Indication: BURKITT^S LEUKAEMIA
     Dosage: UNK (3 G/M2/DAY ON DAY 1, CONSOLIDATION PHASE)
     Route: 065
  4. METHOTREXATE SODIUM. [Suspect]
     Active Substance: METHOTREXATE SODIUM
     Dosage: UNK (3 G/M2/DAY ON DAY 1, CONSECUTIVE COURSE, COPADM 1)
     Route: 065
  5. PREDNISONE. [Suspect]
     Active Substance: PREDNISONE
     Dosage: 60 MG/M2, QD (FROM DAY 1 TO DAY 7, CONSECUTIVE COURSE, COPADM 1)
     Route: 065
  6. VINCRISTINE SULFATE. [Suspect]
     Active Substance: VINCRISTINE SULFATE
     Indication: BURKITT^S LEUKAEMIA
     Dosage: 2 MG, QD (ON DAY 1, CONSECUTIVE COURSE, COPADM 1)
     Route: 065
  7. CYCLOPHOSPHAMIDE. [Suspect]
     Active Substance: CYCLOPHOSPHAMIDE
     Dosage: 300 MG/M2, QD (ON DAY 1, CYTOREDUCTIVE PHASE)
     Route: 065
  8. VINCRISTINE SULFATE. [Suspect]
     Active Substance: VINCRISTINE SULFATE
     Dosage: 2 MG, QD (ON DAY 1, MAINTENANCE)
     Route: 065
  9. VINCRISTINE SULFATE. [Suspect]
     Active Substance: VINCRISTINE SULFATE
     Dosage: 2 MG, QD (ON DAY 1, CYTOREDUCTIVE PHASE)
     Route: 065
  10. CYCLOPHOSPHAMIDE. [Suspect]
     Active Substance: CYCLOPHOSPHAMIDE
     Dosage: 500 MG/M2, QD (FROM DAY 2 TO DAY 4, CONSECUTIVE COURSE, COPADM 1)
     Route: 065
  11. CYTARABINE. [Suspect]
     Active Substance: CYTARABINE
     Indication: BURKITT^S LEUKAEMIA
     Dosage: 100 MG/M2, QD (FROM DAY 1 TO DAY 5 (24?H INFUSION), CONSOLIDATION PHASE)
     Route: 065
  12. CYCLOPHOSPHAMIDE. [Suspect]
     Active Substance: CYCLOPHOSPHAMIDE
     Indication: BURKITT^S LEUKAEMIA
     Dosage: 500 MG/M2, QD (ON DAY 1 AND DAY 2, MAINTENANCE)
     Route: 065
  13. PREDNISONE. [Suspect]
     Active Substance: PREDNISONE
     Indication: BURKITT^S LEUKAEMIA
     Dosage: 60 MG/M2, QD (FROM DAY 1 TO DAY 7, CYTOREDUCTIVE PHASE)
     Route: 065
  14. DOXORUBICIN HYDROCHLORIDE. [Suspect]
     Active Substance: DOXORUBICIN HYDROCHLORIDE
     Dosage: 60 MG/M2, QD (ON DAY 2, MAINTENANCE)
     Route: 065
  15. DOXORUBICIN HYDROCHLORIDE. [Suspect]
     Active Substance: DOXORUBICIN HYDROCHLORIDE
     Indication: BURKITT^S LEUKAEMIA
     Dosage: 60 MG/M2, QD (ON DAY 2, CONSECUTIVE COURSE, COPADM 1)
     Route: 065

REACTIONS (1)
  - Sepsis [Fatal]
